FAERS Safety Report 7897570-8 (Version None)
Quarter: 2011Q4

REPORT INFORMATION
  Report Type: 
  Country: None (occurrence: None)
  Receive Date: 20111107
  Receipt Date: 20111028
  Transmission Date: 20120403
  Serious: Yes (Life-Threatening)
  Sender: FDA-Public Use
  Company Number: JP-ELI_LILLY_AND_COMPANY-JP201110005074

PATIENT
  Age: 74 Year
  Sex: Female

DRUGS (5)
  1. CORTICOSTEROID NOS [Concomitant]
  2. ALIMTA [Suspect]
     Indication: NON-SMALL CELL LUNG CANCER
     Dosage: 750 MG, UNK
     Dates: start: 20110829
  3. ALIMTA [Suspect]
     Dosage: 600 MG, UNK
     Dates: start: 20110926
  4. FOLIC ACID [Concomitant]
  5. VITAMIN B-12 [Concomitant]

REACTIONS (1)
  - HYPERGLYCAEMIA [None]
